FAERS Safety Report 6270834-X (Version None)
Quarter: 2009Q3

REPORT INFORMATION
  Report Type: 
  Country: None (occurrence: None)
  Receive Date: 20090716
  Receipt Date: 20090706
  Transmission Date: 20100115
  Serious: Yes (Hospitalization)
  Sender: FDA-Public Use
  Company Number: PHEH2009US07112

PATIENT
  Sex: Female

DRUGS (2)
  1. DIOVAN [Suspect]
     Dosage: 160 MG
  2. ATENOLOL [Concomitant]
     Dosage: UNK

REACTIONS (4)
  - ASTHENIA [None]
  - BLOOD DISORDER [None]
  - HIP FRACTURE [None]
  - HYPERTENSION [None]
